FAERS Safety Report 18641833 (Version 1)
Quarter: 2020Q4

REPORT INFORMATION
  Report Type: Spontaneous
  Country: GB (occurrence: GB)
  Receive Date: 20201221
  Receipt Date: 20201221
  Transmission Date: 20210114
  Serious: Yes (Other)
  Sender: FDA-Public Use
  Company Number: GB-ACCORD-211548

PATIENT
  Age: 32 Year
  Sex: Female
  Weight: 69 kg

DRUGS (8)
  1. LANSOPRAZOLE. [Concomitant]
     Active Substance: LANSOPRAZOLE
     Dosage: TO BE TAKEN BEFORE FOOD
     Dates: start: 20201109, end: 20201116
  2. DOXYCYCLINE. [Concomitant]
     Active Substance: DOXYCYCLINE
     Dosage: FOR 4 WEEKS THEN REDUCE DOSE
     Dates: start: 20201114
  3. BENZOYL PEROXIDE. [Concomitant]
     Active Substance: BENZOYL PEROXIDE
     Dosage: APPLY 1-2 TIMES DAILY, PREFERABLY AFTER WASHING...
     Dates: start: 20201114
  4. SUMATRIPTAN. [Concomitant]
     Active Substance: SUMATRIPTAN
     Dosage: TAKE AT ONSET OF ATTACK. REPEAT DOSE...
     Dates: start: 20201109
  5. METOCLOPRAMIDE. [Concomitant]
     Active Substance: METOCLOPRAMIDE
     Indication: NAUSEA
     Dates: start: 20201109, end: 20201114
  6. OTOMIZE (ACETIC ACID (+) DEXAMETHASONE (+) NEOMYCIN SULFATE) [Concomitant]
     Active Substance: ACETIC ACID\DEXAMETHASONE\NEOMYCIN SULFATE
     Indication: EAR INFECTION
     Dosage: THREE TI...
     Dates: start: 20201114, end: 20201121
  7. AMITRIPTYLINE [Suspect]
     Active Substance: AMITRIPTYLINE
     Indication: PRODUCT USED FOR UNKNOWN INDICATION
     Dosage: TAKE ONE OR TWO AT NIGHT
     Dates: start: 20201114
  8. IBUPROFEN. [Concomitant]
     Active Substance: IBUPROFEN
     Dosage: AFTER FOOD
     Dates: start: 20201109, end: 20201117

REACTIONS (4)
  - Lethargy [Recovered/Resolved]
  - Emotional disorder [Recovered/Resolved]
  - Fatigue [Recovered/Resolved]
  - Abdominal distension [Recovered/Resolved]

NARRATIVE: CASE EVENT DATE: 20201201
